FAERS Safety Report 4462774-3 (Version None)
Quarter: 2004Q3

REPORT INFORMATION
  Report Type: 
  Country: None (occurrence: None)
  Receive Date: 20040927
  Receipt Date: 20040917
  Transmission Date: 20050211
  Serious: Yes (Life-Threatening, Hospitalization)
  Sender: FDA-Public Use
  Company Number: PMOS_LV0301

PATIENT
  Age: 61 Year
  Sex: Male
  Weight: 111.5849 kg

DRUGS (7)
  1. LEVITRA [Suspect]
     Indication: ORGANIC ERECTILE DYSFUNCTION
     Dosage: 10 MG, PRN; ORAL
     Route: 048
     Dates: start: 20031122
  2. DILTIAZEM [Concomitant]
  3. ULTRAM [Concomitant]
  4. ATENOLOL [Concomitant]
  5. LASIX [Concomitant]
  6. ECOTRIN [Concomitant]
  7. K+ [Concomitant]

REACTIONS (7)
  - ARTERIAL SPASM [None]
  - ARTERIOSPASM CORONARY [None]
  - BLOOD GLUCOSE INCREASED [None]
  - ELECTROCARDIOGRAM ST-T CHANGE [None]
  - INSOMNIA [None]
  - MITRAL VALVE INCOMPETENCE [None]
  - MYOCARDIAL ISCHAEMIA [None]
